FAERS Safety Report 6214494-2 (Version None)
Quarter: 2009Q2

REPORT INFORMATION
  Report Type: 
  Country: None (occurrence: None)
  Receive Date: 20090602
  Receipt Date: 20090519
  Transmission Date: 20091009
  Serious: Yes (Hospitalization)
  Sender: FDA-Public Use
  Company Number: 2009-00606

PATIENT
  Age: 71 Year
  Sex: Female

DRUGS (2)
  1. VELCADE [Suspect]
     Indication: PLASMACYTOMA
     Dosage: 1.3 MG/M2, INTRAVENOUS
     Route: 042
  2. DEXAMETHASONE TAB [Suspect]
     Indication: PLASMACYTOMA

REACTIONS (1)
  - HYPERGLYCAEMIA [None]
